FAERS Safety Report 14763275 (Version 2)
Quarter: 2020Q3

REPORT INFORMATION
  Report Type: Report from Study
  Country: US (occurrence: US)
  Receive Date: 20180416
  Receipt Date: 20190819
  Transmission Date: 20201104
  Serious: Yes (Death)
  Sender: FDA-Public Use
  Company Number: US-ASTRAZENECA-2018SE35145

PATIENT
  Age: 931 Month
  Sex: Male
  Weight: 76.6 kg

DRUGS (10)
  1. CARVEDILOL. [Concomitant]
     Active Substance: CARVEDILOL
  2. ZOLPIDEM [Concomitant]
     Active Substance: ZOLPIDEM TARTRATE
  3. TREMELIMUMAB. [Suspect]
     Active Substance: TREMELIMUMAB
     Indication: NEOPLASM
     Dosage: 75 MG IV OVER 1 HOUR ON DAY 1
     Route: 042
     Dates: start: 20171011
  4. CARBONYL IRON [Concomitant]
     Active Substance: IRON
  5. CYANOCOBALAMIN. [Concomitant]
     Active Substance: CYANOCOBALAMIN
  6. MEDI4736 [Suspect]
     Active Substance: DURVALUMAB
     Indication: NEOPLASM
     Dosage: 1500 MG IV OVER 1 HOUR ON DAY 1
     Route: 042
     Dates: start: 20171011
  7. RADIATION THERAPY [Suspect]
     Active Substance: RADIATION THERAPY
     Indication: NEOPLASM
     Dosage: 0.5 GY BID X 2 DAYS/TOTAL DOSE = 2 GY IN 4 FRACTIONS
     Route: 065
     Dates: start: 20171020
  8. ENOXAPARIN SODIUM. [Concomitant]
     Active Substance: ENOXAPARIN SODIUM
  9. DIOCTYL SULFOSUCCINATE [Concomitant]
  10. OXYCODONE [Concomitant]
     Active Substance: OXYCODONE

REACTIONS (1)
  - Death [Fatal]

NARRATIVE: CASE EVENT DATE: 20171225
